FAERS Safety Report 9342415 (Version 2)
Quarter: 2013Q4

REPORT INFORMATION
  Report Type: Other
  Country: GB (occurrence: GB)
  Receive Date: 20130611
  Receipt Date: 20131029
  Transmission Date: 20140711
  Serious: Yes (Life-Threatening)
  Sender: FDA-Public Use
  Company Number: GB-TARO PHARMACEUTICALS U.S.A., INC-2013SUN00676

PATIENT
  Age: 68 Year
  Sex: Male

DRUGS (8)
  1. WARFARIN [Suspect]
     Indication: PULMONARY EMBOLISM
     Route: 048
  2. TARGRETIN [Interacting]
     Indication: PRODUCT USED FOR UNKNOWN INDICATION
     Dosage: 375 MG, UNK
     Route: 048
     Dates: start: 20130401, end: 20130417
  3. FENOFIBRATE [Concomitant]
  4. LEVOTHYROXINE [Concomitant]
  5. METFORMIN [Concomitant]
  6. METHOXSALEN [Concomitant]
     Dosage: UNK UNK, WEEKLY
     Route: 048
  7. PHOTOTHERAPY PUVA [Concomitant]
     Dosage: UNK, WEEKLY
  8. LAXATIVE (UNSPECIFIED) [Concomitant]

REACTIONS (7)
  - Drug interaction [Unknown]
  - International normalised ratio increased [Recovering/Resolving]
  - Coagulation test abnormal [Unknown]
  - Haematemesis [Unknown]
  - Haematuria [Recovered/Resolved]
  - Haemoptysis [Unknown]
  - Abdominal pain [Unknown]
